FAERS Safety Report 13673292 (Version 2)
Quarter: 2017Q3

REPORT INFORMATION
  Report Type: Spontaneous
  Country: AU (occurrence: AU)
  Receive Date: 20170621
  Receipt Date: 20170711
  Transmission Date: 20171127
  Serious: Yes (Life-Threatening, Hospitalization, Other)
  Sender: FDA-Public Use
  Company Number: AU-CONCORDIA PHARMACEUTICALS INC.-E2B_00008199

PATIENT
  Age: 41 Year
  Sex: Male

DRUGS (12)
  1. FUROSEMIDE. [Concomitant]
     Active Substance: FUROSEMIDE
  2. FOLIC ACID. [Concomitant]
     Active Substance: FOLIC ACID
  3. ENOXAPARIN [Concomitant]
     Active Substance: ENOXAPARIN
  4. ATENOLOL. [Concomitant]
     Active Substance: ATENOLOL
  5. MYCOPHENOLATE MOFETIL. [Suspect]
     Active Substance: MYCOPHENOLATE MOFETIL
     Indication: IMMUNOSUPPRESSANT DRUG THERAPY
  6. CICLOSPORIN [Suspect]
     Active Substance: CYCLOSPORINE
     Indication: IMMUNOSUPPRESSANT DRUG THERAPY
  7. DILTIAZEM. [Concomitant]
     Active Substance: DILTIAZEM
  8. WARFARIN [Concomitant]
     Active Substance: WARFARIN
  9. SIMVASTATIN. [Concomitant]
     Active Substance: SIMVASTATIN
  10. PREDNISOLONE. [Suspect]
     Active Substance: PREDNISOLONE
     Indication: IMMUNOSUPPRESSANT DRUG THERAPY
  11. OMEPRAZOLE. [Concomitant]
     Active Substance: OMEPRAZOLE
  12. SULFAMETHOXAZOLE [Concomitant]
     Active Substance: SULFAMETHOXAZOLE

REACTIONS (3)
  - Bacterial sepsis [Unknown]
  - Urosepsis [Unknown]
  - Bacteraemia [Unknown]
